FAERS Safety Report 12501425 (Version 2)
Quarter: 2016Q2

REPORT INFORMATION
  Report Type: Report from Study
  Country: US (occurrence: US)
  Receive Date: 20160627
  Receipt Date: 20160630
  Transmission Date: 20160815
  Serious: Yes (Other)
  Sender: FDA-Public Use
  Company Number: US-BAYER-2015-454161

PATIENT
  Age: 62 Year
  Sex: Female
  Weight: 71.2 kg

DRUGS (6)
  1. ADEMPAS [Suspect]
     Active Substance: RIOCIGUAT
     Indication: PULMONARY ARTERIAL HYPERTENSION
     Dosage: 1 MG, TID
     Route: 048
     Dates: start: 20151008
  2. WARFARIN [Concomitant]
     Active Substance: WARFARIN
     Dosage: UNK
  3. ADEMPAS [Suspect]
     Active Substance: RIOCIGUAT
     Indication: PULMONARY ARTERIAL HYPERTENSION
     Dosage: 2.5 MG, TID
     Route: 048
     Dates: start: 20151008, end: 20160618
  4. ADEMPAS [Suspect]
     Active Substance: RIOCIGUAT
     Indication: PULMONARY ARTERIAL HYPERTENSION
     Dosage: 1 MG, TID
     Route: 048
     Dates: start: 20151008
  5. ADEMPAS [Suspect]
     Active Substance: RIOCIGUAT
     Indication: PULMONARY ARTERIAL HYPERTENSION
     Dosage: 1.5 MG, TID
     Route: 048
  6. ADEMPAS [Suspect]
     Active Substance: RIOCIGUAT
     Indication: PULMONARY ARTERIAL HYPERTENSION
     Dosage: 2 MG, TID
     Dates: start: 20151008

REACTIONS (16)
  - Nausea [Not Recovered/Not Resolved]
  - Drug dose omission [None]
  - Migraine [None]
  - Nausea [None]
  - Dysphagia [Unknown]
  - Migraine [Not Recovered/Not Resolved]
  - Cough [Unknown]
  - Vomiting [Not Recovered/Not Resolved]
  - Headache [None]
  - Prolapse [None]
  - Nausea [Unknown]
  - Vomiting [Unknown]
  - Peripheral swelling [Unknown]
  - Joint swelling [Unknown]
  - Dyspepsia [Unknown]
  - Decreased appetite [Unknown]

NARRATIVE: CASE EVENT DATE: 20160608
